FAERS Safety Report 11114553 (Version 1)
Quarter: 2015Q2

REPORT INFORMATION
  Report Type: Report from Study
  Country: GB (occurrence: GB)
  Receive Date: 20150515
  Receipt Date: 20150515
  Transmission Date: 20150821
  Serious: Yes (Hospitalization)
  Sender: FDA-Public Use
  Company Number: GB-ROCHE-1080621

PATIENT
  Age: 66 Year
  Sex: Male
  Weight: 71 kg

DRUGS (9)
  1. DEXAMETHASONE. [Concomitant]
     Active Substance: DEXAMETHASONE
     Dosage: 3 DAYS FOLLOWING CHEMOTHERAPY
     Route: 065
     Dates: start: 20120425
  2. EPIRUBICIN [Suspect]
     Active Substance: EPIRUBICIN
     Indication: GASTRIC CANCER
     Dosage: MOST RECENT ADMINISTRATION ON 23 MAY 2012
     Route: 042
     Dates: start: 20120425
  3. CISPLATIN. [Suspect]
     Active Substance: CISPLATIN
     Indication: GASTRIC CANCER
     Dosage: MOST RECENT ADMINISTRATION ON 16 MAY 2012
     Route: 042
     Dates: start: 20120425
  4. CAPECITABINE. [Suspect]
     Active Substance: CAPECITABINE
     Dosage: MOST RECENT ADMINISTRATION ON 02 JUN 2012
     Route: 048
  5. ASPIRIN. [Suspect]
     Active Substance: ASPIRIN
     Indication: PRODUCT USED FOR UNKNOWN INDICATION
     Route: 048
     Dates: start: 200708
  6. BEVACIZUMAB [Suspect]
     Active Substance: BEVACIZUMAB
     Indication: GASTRIC CANCER
     Dosage: MOST RECENT ADMINISTRATION ON 16 MAY 2012
     Route: 042
     Dates: start: 20120425
  7. CAPECITABINE. [Suspect]
     Active Substance: CAPECITABINE
     Indication: GASTRIC CANCER
     Dosage: MOST RECENT ADMINISTRATION ON 23 MAY 2012
     Route: 048
     Dates: start: 20120425
  8. DOMPERIDONE [Concomitant]
     Active Substance: DOMPERIDONE
     Dosage: 3 DAYS FOLLOWING CHEMOTHERAPY
     Route: 065
     Dates: start: 20120425
  9. ONDANSETRON [Concomitant]
     Active Substance: ONDANSETRON
     Dosage: 3 DAYS FOLLOWING CHEMOTHERAPY
     Route: 065
     Dates: start: 20120425

REACTIONS (1)
  - Epistaxis [Recovered/Resolved]

NARRATIVE: CASE EVENT DATE: 20120526
